FAERS Safety Report 24840509 (Version 1)
Quarter: 2025Q1

REPORT INFORMATION
  Report Type: Spontaneous
  Country: US (occurrence: None)
  Receive Date: 20250113
  Receipt Date: 20250113
  Transmission Date: 20250408
  Serious: No
  Sender: FDA-CTU
  Company Number: None

PATIENT
  Age: 42 Year
  Sex: Female
  Weight: 135.9 kg

DRUGS (20)
  1. ZEPBOUND [Suspect]
     Active Substance: TIRZEPATIDE
     Indication: Weight decreased
     Dates: start: 20250104, end: 20250104
  2. METFORMIN [Concomitant]
     Active Substance: METFORMIN HYDROCHLORIDE
  3. MELOXICAM [Concomitant]
     Active Substance: MELOXICAM
  4. OMEPRAZOLE [Concomitant]
     Active Substance: OMEPRAZOLE
  5. GABAPENTIN [Concomitant]
     Active Substance: GABAPENTIN
  6. OXYCODONE [Concomitant]
     Active Substance: OXYCODONE
  7. VITAMIN C [Concomitant]
     Active Substance: ASCORBIC ACID
  8. MELATONIN [Concomitant]
     Active Substance: MELATONIN
  9. MAGNESIUM [Concomitant]
     Active Substance: MAGNESIUM
  10. HERBALS [Concomitant]
     Active Substance: HERBALS
  11. BERBERINE [Concomitant]
     Active Substance: BERBERINE
  12. MULLEIN [Concomitant]
  13. siberian ginseng [Concomitant]
  14. GRAVIOLA [Concomitant]
  15. turkey tail [Concomitant]
  16. lions mane [Concomitant]
  17. HERBALS\TURMERIC [Concomitant]
     Active Substance: HERBALS\TURMERIC
  18. FISH OIL [Concomitant]
     Active Substance: FISH OIL
  19. DANDELION ROOT [Concomitant]
  20. astragalus [Concomitant]

REACTIONS (2)
  - Lymphadenopathy [None]
  - Lymph node pain [None]

NARRATIVE: CASE EVENT DATE: 20250105
